FAERS Safety Report 6742181-0 (Version None)
Quarter: 2010Q2

REPORT INFORMATION
  Report Type: 
  Country: None (occurrence: None)
  Receive Date: 20100526
  Receipt Date: 20100512
  Transmission Date: 20101027
  Serious: Yes (Other)
  Sender: FDA-Public Use
  Company Number: FR-SANOFI-AVENTIS-2010SA027997

PATIENT
  Sex: Female
  Weight: 40 kg

DRUGS (2)
  1. LANTUS [Suspect]
     Route: 058
  2. NOVORAPID [Concomitant]
     Route: 058

REACTIONS (1)
  - BREAST CANCER [None]
